FAERS Safety Report 10490132 (Version 2)
Quarter: 2014Q4

REPORT INFORMATION
  Report Type: Spontaneous
  Country: AU (occurrence: AU)
  Receive Date: 20141002
  Receipt Date: 20141107
  Transmission Date: 20150528
  Serious: Yes (Death, Other)
  Sender: FDA-Public Use
  Company Number: AU-BAXTER-2014BAX057631

PATIENT
  Age: 84 Year
  Sex: Female

DRUGS (1)
  1. DIANEAL [Suspect]
     Active Substance: CALCIUM CHLORIDE\DEXTROSE\MAGNESIUM CHLORIDE\SODIUM CHLORIDE\SODIUM LACTATE
     Indication: PERITONEAL DIALYSIS
     Route: 033

REACTIONS (2)
  - Death [Fatal]
  - General physical health deterioration [Unknown]

NARRATIVE: CASE EVENT DATE: 20140919
